FAERS Safety Report 9410132 (Version 2)
Quarter: 2013Q3

REPORT INFORMATION
  Report Type: Spontaneous
  Country: US (occurrence: US)
  Receive Date: 20130719
  Receipt Date: 20130822
  Transmission Date: 20140515
  Serious: Yes (Hospitalization, Other)
  Sender: FDA-Public Use
  Company Number: US-PFIZER INC-2013209575

PATIENT
  Age: 58 Year
  Sex: Male
  Weight: 100 kg

DRUGS (6)
  1. LIPITOR [Suspect]
     Indication: MYOCARDIAL INFARCTION
     Dosage: 40 MG, 1X/DAY
     Route: 048
     Dates: start: 200802
  2. LIPITOR [Suspect]
     Dosage: UNK
  3. COUMADINE [Suspect]
     Dosage: 2.5 MG, 1X/DAY
  4. CELEXA [Concomitant]
     Dosage: UNK
  5. LORTAB [Concomitant]
     Dosage: UNK
  6. ALLOPURINOL [Concomitant]
     Dosage: UNK

REACTIONS (5)
  - Wound [Unknown]
  - Sepsis [Unknown]
  - Surgery [Unknown]
  - Dysarthria [Unknown]
  - Drug level decreased [Unknown]
